FAERS Safety Report 15794764 (Version 6)
Quarter: 2024Q3

REPORT INFORMATION
  Report Type: Report from Study
  Country: DE (occurrence: DE)
  Receive Date: 20190107
  Receipt Date: 20240919
  Transmission Date: 20241017
  Serious: Yes (Death, Hospitalization)
  Sender: ABBVIE
  Company Number: DE-ABBVIE-19K-062-2611399-00

PATIENT
  Age: 69 Year
  Sex: Female
  Weight: 79 kg

DRUGS (4)
  1. VENETOCLAX [Suspect]
     Active Substance: VENETOCLAX
     Indication: Chronic lymphocytic leukaemia
     Route: 048
     Dates: start: 20180424, end: 20180502
  2. VENETOCLAX [Suspect]
     Active Substance: VENETOCLAX
     Indication: Chronic lymphocytic leukaemia
     Route: 048
     Dates: start: 20180503, end: 20180526
  3. VENETOCLAX [Suspect]
     Active Substance: VENETOCLAX
     Indication: Chronic lymphocytic leukaemia
     Route: 048
     Dates: start: 20180625, end: 20181127
  4. VENETOCLAX [Suspect]
     Active Substance: VENETOCLAX
     Indication: Chronic lymphocytic leukaemia
     Route: 048
     Dates: start: 20180527, end: 20180624

REACTIONS (3)
  - Death [Fatal]
  - Thrombocytopenia [Recovered/Resolved]
  - Thrombocytopenia [Recovering/Resolving]

NARRATIVE: CASE EVENT DATE: 20180514
